FAERS Safety Report 7536496-6 (Version None)
Quarter: 2011Q2

REPORT INFORMATION
  Report Type: 
  Country: None (occurrence: None)
  Receive Date: 20110602
  Receipt Date: 20110526
  Transmission Date: 20111010
  Serious: Yes (Death, Other)
  Sender: FDA-Public Use
  Company Number: 2011SP018073

PATIENT
  Age: 40 Year
  Sex: Male
  Weight: 98 kg

DRUGS (2)
  1. PEG-INTRON [Suspect]
     Indication: HEPATITIS C
     Dosage: 150 MCG;QM;
     Dates: start: 20110406
  2. REBETOL [Suspect]
     Indication: HEPATITIS C
     Dosage: 1200 MG;QD;
     Dates: start: 20110406

REACTIONS (10)
  - PALLOR [None]
  - BLOOD GLUCOSE DECREASED [None]
  - PAIN [None]
  - ACUTE MYOCARDIAL INFARCTION [None]
  - PULMONARY OEDEMA [None]
  - CORONARY ARTERY OCCLUSION [None]
  - CARDIAC FAILURE [None]
  - HYPERHIDROSIS [None]
  - FEELING ABNORMAL [None]
  - ARTERIOSCLEROSIS CORONARY ARTERY [None]
